FAERS Safety Report 9955997 (Version 1)
Quarter: 2014Q1

REPORT INFORMATION
  Report Type: Report from Study
  Country: US (occurrence: US)
  Receive Date: 20140304
  Receipt Date: 20140304
  Transmission Date: 20141002
  Serious: No
  Sender: FDA-Public Use
  Company Number: US-ABBVIE-13P-163-1087152-00

PATIENT
  Age: 39 Year
  Sex: Female
  Weight: 84.9 kg

DRUGS (7)
  1. HUMIRA [Suspect]
     Indication: CROHN^S DISEASE
     Dates: start: 20130319, end: 20130319
  2. HUMIRA [Suspect]
     Route: 058
     Dates: start: 20130402, end: 20130402
  3. HUMIRA [Suspect]
     Route: 058
     Dates: start: 20130416
  4. CHANTIX [Concomitant]
     Indication: EX-TOBACCO USER
  5. CELEXA [Concomitant]
     Indication: ANXIETY
  6. TOPAMAX [Concomitant]
     Indication: MIGRAINE
  7. NEXIUM [Concomitant]
     Indication: GASTROOESOPHAGEAL REFLUX DISEASE

REACTIONS (1)
  - Incorrect drug dosage form administered [Not Recovered/Not Resolved]
